FAERS Safety Report 9711851 (Version 1)
Quarter: 2013Q4

REPORT INFORMATION
  Report Type: Spontaneous
  Country: US (occurrence: US)
  Receive Date: 20131126
  Receipt Date: 20131126
  Transmission Date: 20140711
  Serious: No
  Sender: FDA-Public Use
  Company Number: US-BRISTOL-MYERS SQUIBB COMPANY-19120138

PATIENT
  Age: 66 Year
  Sex: Male
  Weight: 104.31 kg

DRUGS (4)
  1. BYDUREON [Suspect]
     Indication: TYPE 2 DIABETES MELLITUS
     Dosage: PRESCRIPTION #: 66000063
     Dates: start: 20130501
  2. LISINOPRIL [Concomitant]
     Indication: RENAL DISORDER
  3. NIACIN [Concomitant]
     Indication: LIPIDS
  4. XARELTO [Concomitant]
     Indication: COAGULOPATHY

REACTIONS (2)
  - Injection site mass [Not Recovered/Not Resolved]
  - Weight decreased [Unknown]
